FAERS Safety Report 8851111 (Version 1)
Quarter: 2012Q4

REPORT INFORMATION
  Report Type: 
  Country: CO (occurrence: CO)
  Receive Date: 20121019
  Receipt Date: 20121019
  Transmission Date: 20130627
  Serious: Yes (Life-Threatening, Hospitalization)
  Sender: FDA-Public Use
  Company Number: CO-SANOFI-AVENTIS-2012SA076015

PATIENT
  Age: 19 Year
  Sex: Male

DRUGS (2)
  1. LANTUS [Suspect]
     Indication: DIABETES MELLITUS
     Route: 058
     Dates: start: 2008
  2. INSULIN LISPRO [Suspect]
     Indication: DIABETES MELLITUS
     Route: 058
     Dates: start: 2008

REACTIONS (3)
  - Diabetic ketoacidosis [Recovered/Resolved]
  - Polyuria [Recovered/Resolved]
  - Polydipsia [Recovered/Resolved]
